FAERS Safety Report 4588025-7 (Version None)
Quarter: 2005Q1

REPORT INFORMATION
  Report Type: 
  Country: None (occurrence: None)
  Receive Date: 20050217
  Receipt Date: 20050209
  Transmission Date: 20050727
  Serious: Yes (Life-Threatening, Hospitalization, Disabling)
  Sender: FDA-Public Use
  Company Number: APP200500090

PATIENT
  Age: 40 Day

DRUGS (2)
  1. AMPICILLIN FOR INJECTION, USP (AMPICILLIN) [Suspect]
     Indication: SEPSIS
     Dosage: 375 MG, ONCE, INTRAVENOUS
     Route: 042
     Dates: start: 20050127, end: 20050127
  2. AMPICILLIN FOR INJECTION, USP (AMPICILLIN) [Suspect]

REACTIONS (4)
  - APNOEA [None]
  - CARDIO-RESPIRATORY ARREST [None]
  - CYANOSIS [None]
  - NERVOUS SYSTEM DISORDER [None]
